FAERS Safety Report 4804162-3 (Version None)
Quarter: 2005Q4

REPORT INFORMATION
  Report Type: 
  Country: None (occurrence: None)
  Receive Date: 20051014
  Receipt Date: 20051011
  Transmission Date: 20060501
  Serious: Yes (Other)
  Sender: FDA-Public Use
  Company Number: USA-2005-0021483

PATIENT
  Age: 53 Year
  Sex: Female

DRUGS (2)
  1. OXYCONTIN [Suspect]
     Dosage: MG, ORAL
     Route: 048
  2. OXYCODONE HCL [Suspect]
     Dosage: MG, ORAL
     Route: 048

REACTIONS (1)
  - DYSPHAGIA [None]
